FAERS Safety Report 4514471-3 (Version None)
Quarter: 2004Q4

REPORT INFORMATION
  Report Type: 
  Country: None (occurrence: None)
  Receive Date: 20040928
  Receipt Date: 20040716
  Transmission Date: 20050328
  Serious: No
  Sender: FDA-Public Use
  Company Number: 04P-163-0267322-00

PATIENT
  Age: 56 Year
  Sex: Female
  Weight: 53.0709 kg

DRUGS (4)
  1. HUMIRA [Suspect]
     Indication: RHEUMATOID ARTHRITIS
     Dosage: 40 MG, 1 IN 2 WK, SUBCUTANEOUS
     Route: 058
     Dates: start: 20040325
  2. CELECOXIB [Concomitant]
  3. METHOTREXATE [Concomitant]
  4. CONJUGATED ESTROGEN [Concomitant]

REACTIONS (3)
  - GOITRE [None]
  - MENOPAUSAL SYMPTOMS [None]
  - THYROID FUNCTION TEST ABNORMAL [None]
